FAERS Safety Report 9775100 (Version 1)
Quarter: 2013Q4

REPORT INFORMATION
  Report Type: Spontaneous
  Country: US (occurrence: US)
  Receive Date: 20131220
  Receipt Date: 20131220
  Transmission Date: 20140711
  Serious: No
  Sender: FDA-Public Use
  Company Number: US-PFIZER INC-2013362821

PATIENT
  Age: 43 Year
  Sex: Male
  Weight: 58.96 kg

DRUGS (13)
  1. CELEBREX [Suspect]
     Indication: PAIN IN EXTREMITY
     Dosage: 2X/DAY
     Dates: end: 20131209
  2. CELEBREX [Suspect]
     Indication: BACK PAIN
  3. CELEBREX [Suspect]
     Indication: ARTHRALGIA
  4. MORPHINE [Concomitant]
     Indication: PAIN
     Dosage: 15 MG IMMEDIATE RELEASE, 2X/DAY
  5. MORPHINE [Concomitant]
     Dosage: 15 MG EXTENDED RELEASE, 2X/DAY
  6. NEXIUM [Concomitant]
     Indication: GASTRIC DISORDER
     Dosage: UNK
  7. DOMPERIDONE [Concomitant]
     Indication: GASTRIC DISORDER
     Dosage: UNK
  8. CETIRIZINE [Concomitant]
     Indication: HYPERSENSITIVITY
     Dosage: UNK
  9. MIRTAZAPINE [Concomitant]
     Dosage: 50 MG, 3X/DAY
  10. CARBAMAZEPINE [Concomitant]
     Dosage: UNK
  11. CELEXA [Concomitant]
     Indication: PAIN
     Dosage: UNK
  12. DIAZEPAM [Concomitant]
     Dosage: UNK
  13. AMITRIPTYLINE [Concomitant]
     Dosage: UNK

REACTIONS (2)
  - Headache [Unknown]
  - Weight decreased [Unknown]
